FAERS Safety Report 8848698 (Version 3)
Quarter: 2014Q2

REPORT INFORMATION
  Report Type: Spontaneous
  Country: FR (occurrence: FR)
  Receive Date: 20121018
  Receipt Date: 20140624
  Transmission Date: 20141212
  Serious: Yes (Hospitalization, Other)
  Sender: FDA-Public Use
  Company Number: FR-JNJFOC-20121010191

PATIENT
  Age: 82 Year
  Sex: Female

DRUGS (7)
  1. XARELTO [Suspect]
     Indication: THROMBOSIS PROPHYLAXIS
     Route: 065
     Dates: start: 20120820, end: 201209
  2. STILNOX [Concomitant]
  3. FLUINDIONE [Concomitant]
     Dates: end: 20120820
  4. CORENITEC [Concomitant]
  5. DIOVENOR [Concomitant]
  6. BETAHISTINE HYDROCHLORIDE [Concomitant]
  7. DAFALGAN [Concomitant]

REACTIONS (4)
  - Pulmonary embolism [Recovering/Resolving]
  - Dyspnoea exertional [Recovered/Resolved]
  - Hypoxia [Recovered/Resolved]
  - Drug ineffective [Unknown]
